FAERS Safety Report 8523284-7 (Version None)
Quarter: 2012Q3

REPORT INFORMATION
  Report Type: 
  Country: None (occurrence: None)
  Receive Date: 20120720
  Receipt Date: 20120716
  Transmission Date: 20120928
  Serious: Yes (Hospitalization)
  Sender: FDA-Public Use
  Company Number: DE-US-EMD SERONO, INC.-7146242

PATIENT

DRUGS (1)
  1. REBIF [Suspect]
     Indication: MULTIPLE SCLEROSIS
     Route: 058
     Dates: start: 20120118

REACTIONS (4)
  - LYMPHADENOPATHY [None]
  - JOINT SWELLING [None]
  - ARTHRALGIA [None]
  - BORRELIA INFECTION [None]
